FAERS Safety Report 9882378 (Version 2)
Quarter: 2014Q1

REPORT INFORMATION
  Report Type: Spontaneous
  Country: JP (occurrence: JP)
  Receive Date: 20140207
  Receipt Date: 20140305
  Transmission Date: 20141002
  Serious: Yes (Other)
  Sender: FDA-Public Use
  Company Number: JP-GLAXOSMITHKLINE-B0966226A

PATIENT
  Age: 40 Year
  Sex: Female

DRUGS (1)
  1. NOGITECAN HYDROCHLORIDE [Suspect]
     Indication: OVARIAN CANCER RECURRENT
     Dosage: 1.25MGM2 PER DAY
     Route: 042
     Dates: start: 20130708, end: 20130921

REACTIONS (9)
  - Device related infection [Recovered/Resolved]
  - Neutrophil count decreased [Recovering/Resolving]
  - Anaemia [Recovering/Resolving]
  - Platelet count decreased [Recovering/Resolving]
  - Aspartate aminotransferase increased [Recovering/Resolving]
  - Fatigue [Recovered/Resolved]
  - White blood cell count decreased [Recovered/Resolved]
  - Alanine aminotransferase increased [Recovered/Resolved]
  - Decreased appetite [Recovered/Resolved]
